FAERS Safety Report 4815048-2 (Version None)
Quarter: 2005Q4

REPORT INFORMATION
  Report Type: 
  Country: None (occurrence: None)
  Receive Date: 20051026
  Receipt Date: 20051007
  Transmission Date: 20060501
  Serious: Yes (Hospitalization)
  Sender: FDA-Public Use
  Company Number: EWC051046432

PATIENT
  Age: 10 Month
  Sex: Male

DRUGS (1)
  1. HUMATROPE [Suspect]
     Indication: HYPOPITUITARISM
     Dosage: 0.8 MG
     Dates: start: 20050927

REACTIONS (2)
  - GASTROENTERITIS [None]
  - MALAISE [None]
